FAERS Safety Report 7703245-8 (Version None)
Quarter: 2011Q3

REPORT INFORMATION
  Report Type: 
  Country: None (occurrence: None)
  Receive Date: 20110823
  Receipt Date: 20110818
  Transmission Date: 20111222
  Serious: Yes (Hospitalization)
  Sender: FDA-Public Use
  Company Number: FR-SANOFI-AVENTIS-2011SA052806

PATIENT
  Age: 48 Year
  Sex: Male

DRUGS (5)
  1. LOVENOX [Suspect]
     Indication: PROPHYLAXIS
     Route: 065
     Dates: start: 20110531
  2. OXACILLIN [Suspect]
     Route: 065
     Dates: start: 20110531, end: 20110623
  3. GENTAMICIN [Suspect]
     Route: 065
     Dates: start: 20110531, end: 20110604
  4. IMOVANE [Suspect]
     Route: 048
  5. LEVOFLOXACIN [Suspect]
     Route: 065
     Dates: start: 20110610

REACTIONS (2)
  - NEUTROPENIA [None]
  - AGRANULOCYTOSIS [None]
